FAERS Safety Report 12486989 (Version 1)
Quarter: 2016Q2

REPORT INFORMATION
  Report Type: Spontaneous
  Country: US (occurrence: None)
  Receive Date: 20160621
  Receipt Date: 20160621
  Transmission Date: 20160815
  Serious: Yes (Disabling)
  Sender: FDA-Public Use
  Company Number: None

PATIENT
  Age: 48 Year
  Sex: Female
  Weight: 167.83 kg

DRUGS (17)
  1. VITAMIN D [Concomitant]
     Active Substance: CHOLECALCIFEROL
  2. VITAMIN E [Concomitant]
     Active Substance: .ALPHA.-TOCOPHEROL
  3. OSTEO BIFLEX [Concomitant]
     Active Substance: CHONDROITIN SULFATE A\GLUCOSAMINE
  4. MAGNESIUM [Concomitant]
     Active Substance: MAGNESIUM
  5. ALEVE [Concomitant]
     Active Substance: NAPROXEN SODIUM
  6. CINNAMON. [Concomitant]
     Active Substance: CINNAMON
  7. LEVOFLOXACIN. [Suspect]
     Active Substance: LEVOFLOXACIN
  8. LEVOTHYROXINE. [Concomitant]
     Active Substance: LEVOTHYROXINE
  9. GABAPENTIN. [Concomitant]
     Active Substance: GABAPENTIN
  10. LORAZEPAN [Concomitant]
     Active Substance: LORAZEPAM
  11. TYLENOL [Concomitant]
     Active Substance: ACETAMINOPHEN
  12. DULOXETINE. [Concomitant]
     Active Substance: DULOXETINE
  13. VITAMIN B COMPLEX [Concomitant]
     Active Substance: CYANOCOBALAMIN\DEXPANTHENOL\NIACINAMIDE\PYRIDOXINE HYDROCHLORIDE\RIBOFLAVIN 5^-PHOSPHATE SODIUM\THIAMINE HYDROCHLORIDE\VITAMIN B COMPLEX
  14. BIOTIN [Concomitant]
     Active Substance: BIOTIN
  15. IB [Concomitant]
  16. VITAMIN C [Concomitant]
     Active Substance: ASCORBIC ACID
  17. IRON [Concomitant]
     Active Substance: IRON

REACTIONS (22)
  - Alopecia [None]
  - Arthralgia [None]
  - Urinary tract discomfort [None]
  - Abdominal pain [None]
  - Malaise [None]
  - Hyperhidrosis [None]
  - Fatigue [None]
  - Oropharyngeal pain [None]
  - Amnesia [None]
  - Quality of life decreased [None]
  - Paraesthesia [None]
  - Anxiety [None]
  - Autoimmune thyroiditis [None]
  - Weight increased [None]
  - Burning sensation [None]
  - Depression [None]
  - Neuralgia [None]
  - Impaired work ability [None]
  - Musculoskeletal pain [None]
  - Myalgia [None]
  - Arthropathy [None]
  - Thyroid disorder [None]
